FAERS Safety Report 22110345 (Version 3)
Quarter: 2024Q3

REPORT INFORMATION
  Report Type: Report from Study
  Country: MX (occurrence: MX)
  Receive Date: 20230317
  Receipt Date: 20240809
  Transmission Date: 20241017
  Serious: Yes (Other)
  Sender: NOVARTIS
  Company Number: MX-002147023-NVSC2023MX058281

PATIENT
  Sex: Female
  Weight: 72 kg

DRUGS (2)
  1. GILENYA [Suspect]
     Active Substance: FINGOLIMOD HYDROCHLORIDE
     Indication: Multiple sclerosis
     Dosage: 0.5 MG, QD, BY MOUTH, IN THE MORNINGS, AFTER BREAKFAST
     Route: 048
     Dates: start: 20220912
  2. IMIPRAMINE [Concomitant]
     Active Substance: IMIPRAMINE
     Indication: Depression
     Dosage: 0.25 DOSAGE FORM, QD AT NIGHT (STARTED 2 YEARS AGO)
     Route: 048

REACTIONS (14)
  - Blindness transient [Recovering/Resolving]
  - Weight increased [Not Recovered/Not Resolved]
  - Vomiting [Recovering/Resolving]
  - Spinal pain [Not Recovered/Not Resolved]
  - Hypoaesthesia [Not Recovered/Not Resolved]
  - Blood cholesterol increased [Unknown]
  - Ocular discomfort [Not Recovered/Not Resolved]
  - Mood altered [Not Recovered/Not Resolved]
  - Headache [Recovering/Resolving]
  - Diarrhoea [Recovered/Resolved]
  - Fatigue [Not Recovered/Not Resolved]
  - Nausea [Not Recovered/Not Resolved]
  - Abdominal pain upper [Unknown]
  - Diarrhoea [Unknown]

NARRATIVE: CASE EVENT DATE: 20220101
